FAERS Safety Report 5930721-0 (Version None)
Quarter: 2008Q4

REPORT INFORMATION
  Report Type: 
  Country: None (occurrence: None)
  Receive Date: 20081021
  Receipt Date: 20081008
  Transmission Date: 20090506
  Serious: Yes (Other)
  Sender: FDA-Public Use
  Company Number: IPS_01301_2008

PATIENT
  Age: 58 Year
  Sex: Male

DRUGS (1)
  1. APO-GO (APO-GO - APOMORPHINE HYDROCHLORIDE) (NOT SPECIFIED) [Suspect]
     Indication: DRUG USE FOR UNKNOWN INDICATION
     Dosage: (DF, SUBCUTANEOUS)
     Route: 058
     Dates: start: 20080301

REACTIONS (1)
  - HAEMOLYTIC ANAEMIA [None]
